FAERS Safety Report 10389791 (Version 1)
Quarter: 2014Q3

REPORT INFORMATION
  Report Type: Spontaneous
  Country: FR (occurrence: FR)
  Receive Date: 20140818
  Receipt Date: 20140818
  Transmission Date: 20150326
  Serious: Yes (Hospitalization)
  Sender: FDA-Public Use
  Company Number: FR-JNJFOC-20140802012

PATIENT
  Age: 59 Year
  Sex: Male
  Weight: 85 kg

DRUGS (9)
  1. RISPERDAL [Suspect]
     Active Substance: RISPERIDONE
     Indication: PRODUCT USED FOR UNKNOWN INDICATION
     Route: 048
  2. RISPERDAL [Suspect]
     Active Substance: RISPERIDONE
     Indication: PRODUCT USED FOR UNKNOWN INDICATION
     Route: 048
  3. CAPRELSA [Interacting]
     Active Substance: VANDETANIB
     Indication: CUSHING^S SYNDROME
     Route: 065
     Dates: start: 20130909
  4. THERALENE [Suspect]
     Active Substance: TRIMEPRAZINE
     Indication: PRODUCT USED FOR UNKNOWN INDICATION
     Route: 065
  5. DEPAKOTE [Suspect]
     Active Substance: DIVALPROEX SODIUM
     Indication: PRODUCT USED FOR UNKNOWN INDICATION
     Route: 065
  6. DEROXAT [Interacting]
     Active Substance: PAROXETINE HYDROCHLORIDE
     Indication: PRODUCT USED FOR UNKNOWN INDICATION
     Route: 048
  7. EFFEXOR [Suspect]
     Active Substance: VENLAFAXINE HYDROCHLORIDE
     Indication: PRODUCT USED FOR UNKNOWN INDICATION
     Route: 065
  8. CAPRELSA [Interacting]
     Active Substance: VANDETANIB
     Indication: CUSHING^S SYNDROME
     Route: 065
     Dates: start: 20120928, end: 201307
  9. ABILIFY [Suspect]
     Active Substance: ARIPIPRAZOLE
     Indication: PRODUCT USED FOR UNKNOWN INDICATION
     Route: 065
     Dates: start: 2014

REACTIONS (8)
  - Somnolence [Unknown]
  - Drug interaction [Unknown]
  - Depression [Unknown]
  - Depression [Unknown]
  - Disorientation [Unknown]
  - Generalised tonic-clonic seizure [Unknown]
  - Disturbance in attention [Unknown]
  - Aphasia [Unknown]

NARRATIVE: CASE EVENT DATE: 201307
